FAERS Safety Report 20848742 (Version 2)
Quarter: 2022Q2

REPORT INFORMATION
  Report Type: Spontaneous
  Country: FR (occurrence: FR)
  Receive Date: 20220519
  Receipt Date: 20220530
  Transmission Date: 20220721
  Serious: Yes (Other)
  Sender: FDA-Public Use
  Company Number: FR-Merck Healthcare KGaA-9322837

PATIENT
  Sex: Female

DRUGS (1)
  1. SAIZEN [Suspect]
     Active Substance: SOMATROPIN
     Indication: Growth retardation
     Dosage: EVERY DAY

REACTIONS (3)
  - Thyroid cancer [Unknown]
  - Contraindicated product administered [Unknown]
  - Off label use [Not Recovered/Not Resolved]
